FAERS Safety Report 7662881-8 (Version None)
Quarter: 2011Q3

REPORT INFORMATION
  Report Type: 
  Country: None (occurrence: None)
  Receive Date: 20110805
  Receipt Date: 20100824
  Transmission Date: 20111222
  Serious: No
  Sender: FDA-Public Use
  Company Number: US-ABBOTT-10P-163-0667503-00

PATIENT
  Sex: Male
  Weight: 77.634 kg

DRUGS (8)
  1. LIPITOR [Concomitant]
     Indication: BLOOD CHOLESTEROL INCREASED
  2. ATENOLOL [Concomitant]
     Indication: CHEST PAIN
  3. PLAVIX [Concomitant]
     Indication: MYOCARDIAL INFARCTION
  4. DIOVAN [Concomitant]
     Indication: HYPERTENSION
  5. SEROQUEL [Concomitant]
     Indication: INSOMNIA
  6. NIASPAN [Suspect]
     Indication: BLOOD TRIGLYCERIDES INCREASED
     Dosage: EVERY NIGHT
     Dates: start: 20100101, end: 20100701
  7. WELLBUTRIN [Concomitant]
     Indication: ANXIETY
  8. ASPIRIN [Concomitant]
     Indication: MYOCARDIAL INFARCTION

REACTIONS (2)
  - BURNING SENSATION [None]
  - FLUSHING [None]
